FAERS Safety Report 8570383-X (Version None)
Quarter: 2012Q3

REPORT INFORMATION
  Report Type: 
  Country: None (occurrence: None)
  Receive Date: 20120803
  Receipt Date: 20120725
  Transmission Date: 20120928
  Serious: Yes (Other)
  Sender: FDA-Public Use
  Company Number: DE-ASTRAZENECA-2012SE53501

PATIENT
  Age: 26460 Day
  Sex: Male
  Weight: 72 kg

DRUGS (7)
  1. FLUVASTATIN SODIUM [Suspect]
     Indication: HYPERLIPIDAEMIA
     Dates: start: 20060101, end: 20120601
  2. ASPIRIN [Concomitant]
     Dates: start: 20060101
  3. NEBIVOLOL HCL [Concomitant]
     Dates: start: 20060101
  4. EZETIMIBE [Concomitant]
     Dates: start: 20090101, end: 20120701
  5. ALLOPURINOL [Concomitant]
     Indication: GOUT
     Dates: start: 19820101, end: 20120711
  6. BRILINTA [Suspect]
     Indication: STENT PLACEMENT
     Route: 048
     Dates: start: 20120401, end: 20120601
  7. DIOVAN [Concomitant]
     Dates: start: 20060101

REACTIONS (3)
  - WEIGHT DECREASED [None]
  - MUSCLE ATROPHY [None]
  - MYALGIA [None]
